FAERS Safety Report 6171301-4 (Version None)
Quarter: 2009Q2

REPORT INFORMATION
  Report Type: 
  Country: None (occurrence: None)
  Receive Date: 20090428
  Receipt Date: 20090428
  Transmission Date: 20091009
  Serious: Yes (Life-Threatening, Hospitalization)
  Sender: FDA-Public Use
  Company Number: None

PATIENT
  Age: 53 Year
  Sex: Female
  Weight: 106.5953 kg

DRUGS (1)
  1. ARTHROTEC [Suspect]
     Indication: CHEST PAIN
     Dosage: 2X
     Dates: start: 20080506, end: 20080509

REACTIONS (1)
  - CEREBROVASCULAR ACCIDENT [None]
